FAERS Safety Report 5891538-9 (Version None)
Quarter: 2008Q3

REPORT INFORMATION
  Report Type: 
  Country: None (occurrence: None)
  Receive Date: 20080918
  Receipt Date: 20080903
  Transmission Date: 20090109
  Serious: Yes (Death, Other)
  Sender: FDA-Public Use
  Company Number: 2008000309

PATIENT
  Age: 82 Year
  Sex: Male

DRUGS (13)
  1. ERLOTINIB (ERLOTINIB HC1) (TABLET) (ERLOTINIB HC1) [Suspect]
     Indication: LUNG ADENOCARCINOMA
     Dosage: 150 MG, QD, ORAL
     Route: 048
     Dates: start: 20080110, end: 20080306
  2. EVIPROSTAT (EVIPROSTAT) [Concomitant]
  3. SENNOSIDES [Concomitant]
  4. NAIXAN (NAPROXEN SODIUM) [Concomitant]
  5. RIZE (CLOTIAZEPAM) [Concomitant]
  6. GASMOTIN (MOSAPRIDE CITRATE) [Concomitant]
  7. MAGNESIUM OXIDE (MAGNESIUM OXIDE) [Concomitant]
  8. PARIET (RABEPRAZOL SODIUM) [Concomitant]
  9. NOVAMIN (PROCHLORPERAINE) [Concomitant]
  10. CLARITIN [Concomitant]
  11. FLIVAS (NAFTOPIDIL) [Concomitant]
  12. MS CONTIN [Concomitant]
  13. HALOPERIDOL [Concomitant]

REACTIONS (5)
  - ANGINA PECTORIS [None]
  - FOLLICULITIS [None]
  - MALIGNANT NEOPLASM PROGRESSION [None]
  - METASTASES TO CENTRAL NERVOUS SYSTEM [None]
  - PARONYCHIA [None]
